FAERS Safety Report 8993135 (Version 1)
Quarter: 2013Q1

REPORT INFORMATION
  Report Type: Spontaneous
  Country: UA (occurrence: UA)
  Receive Date: 20130102
  Receipt Date: 20130102
  Transmission Date: 20140127
  Serious: Yes (Death, Hospitalization)
  Sender: FDA-Public Use
  Company Number: UA-ROCHE-1175951

PATIENT
  Age: 38 Year
  Sex: Male

DRUGS (1)
  1. ALTEPLASE [Suspect]
     Indication: CEREBRAL ARTERY THROMBOSIS
     Route: 013
     Dates: start: 20100817

REACTIONS (3)
  - Aneurysm ruptured [Fatal]
  - Vasospasm [Fatal]
  - Drug ineffective [Unknown]
